FAERS Safety Report 22331080 (Version 7)
Quarter: 2023Q2

REPORT INFORMATION
  Report Type: Spontaneous
  Country: US (occurrence: US)
  Receive Date: 20230517
  Receipt Date: 20230621
  Transmission Date: 20230721
  Serious: Yes (Other)
  Sender: FDA-Public Use
  Company Number: US-UNITED THERAPEUTICS-UNT-2023-012876

PATIENT
  Age: 80 Year
  Sex: Female
  Weight: 61.224 kg

DRUGS (10)
  1. TYVASO DPI [Suspect]
     Active Substance: TREPROSTINIL
     Indication: Pulmonary arterial hypertension
     Dosage: 16 ?G, QID
     Dates: start: 20230501, end: 20230504
  2. TYVASO DPI [Suspect]
     Active Substance: TREPROSTINIL
     Dosage: 16 ?G, QID (RESTART)
     Dates: start: 20230505, end: 202305
  3. TYVASO DPI [Suspect]
     Active Substance: TREPROSTINIL
     Dosage: 48 ?G, QID
     Dates: start: 202305, end: 202305
  4. TYVASO DPI [Suspect]
     Active Substance: TREPROSTINIL
     Dosage: 48 ?G, QID (ONE16 ?G+ ONE32 ?G)
     Dates: start: 202305, end: 2023
  5. TYVASO DPI [Suspect]
     Active Substance: TREPROSTINIL
     Dosage: 32 ?G, QID
     Dates: start: 2023
  6. TYVASO DPI [Suspect]
     Active Substance: TREPROSTINIL
     Indication: Pulmonary arterial hypertension
     Dosage: UNK
  7. TYVASO DPI [Suspect]
     Active Substance: TREPROSTINIL
     Indication: Pulmonary arterial hypertension
     Dosage: UNK
  8. TYVASO DPI [Suspect]
     Active Substance: TREPROSTINIL
     Dosage: UNK
  9. TYVASO DPI [Suspect]
     Active Substance: TREPROSTINIL
     Indication: Pulmonary arterial hypertension
     Dosage: UNK
  10. SILDENAFIL CITRATE [Concomitant]
     Active Substance: SILDENAFIL CITRATE
     Indication: Product used for unknown indication
     Dosage: UNK
     Route: 065

REACTIONS (12)
  - Oxygen saturation decreased [Unknown]
  - Dizziness [Unknown]
  - Feeling jittery [Unknown]
  - Blood pressure systolic decreased [Unknown]
  - Heart rate increased [Recovering/Resolving]
  - Fluid retention [Unknown]
  - Abdominal distension [Unknown]
  - Localised oedema [Unknown]
  - Blood pressure abnormal [Unknown]
  - Head discomfort [Unknown]
  - Asthenia [Unknown]
  - Device malfunction [Unknown]

NARRATIVE: CASE EVENT DATE: 20230501
